FAERS Safety Report 8483542-1 (Version None)
Quarter: 2012Q3

REPORT INFORMATION
  Report Type: 
  Country: None (occurrence: None)
  Receive Date: 20120702
  Receipt Date: 20120626
  Transmission Date: 20120928
  Serious: Yes (Hospitalization)
  Sender: FDA-Public Use
  Company Number: TR-MERCK-1206USA05597

PATIENT
  Age: 54 Year
  Sex: Female

DRUGS (3)
  1. PRIMAXIN [Suspect]
     Indication: SEPSIS
     Route: 065
  2. CORTICOSTEROIDS (UNSPECIFIED) [Concomitant]
     Indication: WEGENER'S GRANULOMATOSIS
     Route: 065
  3. VANCOMYCIN [Concomitant]
     Indication: SEPSIS
     Route: 065

REACTIONS (1)
  - DRUG INEFFECTIVE [None]
